FAERS Safety Report 5140761-X (Version None)
Quarter: 2006Q4

REPORT INFORMATION
  Report Type: 
  Country: None (occurrence: None)
  Receive Date: 20061025
  Receipt Date: 20061016
  Transmission Date: 20070319
  Serious: Yes (Other)
  Sender: FDA-Public Use
  Company Number: UA-2006-031027

PATIENT
  Age: 46 Year
  Sex: 0

DRUGS (1)
  1. MIRENA [Suspect]
     Indication: UTERINE LEIOMYOMA
     Dosage: 20 UG, CONT, INTRA-UTERINE
     Route: 015
     Dates: start: 20060512

REACTIONS (3)
  - ABDOMINAL PAIN LOWER [None]
  - OVARIAN DISORDER [None]
  - UTERINE NEOPLASM [None]
